FAERS Safety Report 5031360-9 (Version None)
Quarter: 2006Q2

REPORT INFORMATION
  Report Type: 
  Country: None (occurrence: None)
  Receive Date: 20060621
  Receipt Date: 20050103
  Transmission Date: 20061013
  Serious: Yes (Life-Threatening)
  Sender: FDA-Public Use
  Company Number: 2005CG00017

PATIENT
  Age: 61 Year
  Sex: Female

DRUGS (6)
  1. NEXIUM [Suspect]
     Route: 048
  2. CORTANCYL [Suspect]
     Indication: RHEUMATOID ARTHRITIS
     Route: 048
  3. LEVOTHYROX [Suspect]
     Indication: HYPOTHYROIDISM
     Route: 048
  4. IXPRIM [Suspect]
     Route: 048
  5. HUMIRA [Suspect]
     Indication: RHEUMATOID ARTHRITIS
     Route: 058
     Dates: start: 20040308, end: 20040904
  6. ARAVA [Suspect]
     Indication: RHEUMATOID ARTHRITIS

REACTIONS (1)
  - TUBERCULOSIS [None]
